FAERS Safety Report 6171133-7 (Version None)
Quarter: 2009Q2

REPORT INFORMATION
  Report Type: 
  Country: None (occurrence: None)
  Receive Date: 20090428
  Receipt Date: 20090428
  Transmission Date: 20091009
  Serious: Yes (Other)
  Sender: FDA-Public Use
  Company Number: None

PATIENT
  Age: 48 Year
  Sex: Female
  Weight: 56.6996 kg

DRUGS (2)
  1. XOPENEX [Suspect]
  2. PROAIR HFA [Suspect]

REACTIONS (7)
  - ANGER [None]
  - CHEST DISCOMFORT [None]
  - DRUG EFFECT DECREASED [None]
  - DYSPNOEA [None]
  - FEAR [None]
  - PRODUCT QUALITY ISSUE [None]
  - WHEEZING [None]
